FAERS Safety Report 9471789 (Version 2)
Quarter: 2013Q3

REPORT INFORMATION
  Report Type: Spontaneous
  Country: US (occurrence: US)
  Receive Date: 20130822
  Receipt Date: 20130822
  Transmission Date: 20140515
  Serious: Yes (Other)
  Sender: FDA-Public Use
  Company Number: US-TMC-CABO-13003116

PATIENT
  Age: 53 Year
  Sex: Male

DRUGS (7)
  1. COMETRIQ [Suspect]
     Indication: RENAL CANCER
     Dosage: 60 MG, QD
     Route: 048
     Dates: start: 20130726
  2. COMETRIQ [Suspect]
     Indication: METASTASIS
  3. OXYCONTIN [Concomitant]
  4. WARFARIN [Concomitant]
  5. DEXAMETHASONE [Concomitant]
  6. PROTONIX [Concomitant]
  7. ZOMETA [Concomitant]

REACTIONS (4)
  - Blood lactate dehydrogenase increased [Unknown]
  - Pyrexia [Recovering/Resolving]
  - Fatigue [Recovering/Resolving]
  - Decreased appetite [Recovering/Resolving]
